FAERS Safety Report 6829643-2 (Version None)
Quarter: 2010Q3

REPORT INFORMATION
  Report Type: 
  Country: None (occurrence: None)
  Receive Date: 20100709
  Receipt Date: 20070504
  Transmission Date: 20110219
  Serious: No
  Sender: FDA-Public Use
  Company Number: US-PFIZER INC-2007011842

PATIENT
  Sex: Female
  Weight: 72.57 kg

DRUGS (14)
  1. CHANTIX [Suspect]
     Indication: SMOKING CESSATION THERAPY
     Dosage: INTERVAL: EVERY DAY
     Route: 048
     Dates: start: 20070204
  2. LISINOPRIL AND HYDROCHLOROTHIAZIDE [Concomitant]
  3. LEVOTHYROXINE SODIUM [Concomitant]
  4. MONTELUKAST SODIUM [Concomitant]
  5. XALATAN [Concomitant]
     Indication: GLAUCOMA
  6. TIOTROPIUM BROMIDE [Concomitant]
     Indication: CHRONIC OBSTRUCTIVE PULMONARY DISEASE
  7. BUPROPION HCL [Concomitant]
  8. ALBUTEROL [Concomitant]
     Indication: ASTHMA
  9. PRILOSEC [Concomitant]
  10. MUCINEX [Concomitant]
  11. SUDAFED 12 HOUR [Concomitant]
     Indication: NASAL CONGESTION
  12. DETROL LA [Concomitant]
  13. CENTRUM [Concomitant]
  14. DOXYCYCLINE [Concomitant]
     Dates: start: 20070122

REACTIONS (2)
  - MOTOR DYSFUNCTION [None]
  - PAIN [None]
